FAERS Safety Report 19501331 (Version 3)
Quarter: 2021Q3

REPORT INFORMATION
  Report Type: Spontaneous
  Country: US (occurrence: US)
  Receive Date: 20210707
  Receipt Date: 20210731
  Transmission Date: 20211014
  Serious: Yes (Hospitalization, Other)
  Sender: FDA-Public Use
  Company Number: US-AMGEN-USASP2021102634

PATIENT
  Age: 50 Year
  Sex: Female

DRUGS (9)
  1. KYPROLIS [Suspect]
     Active Substance: CARFILZOMIB
     Dosage: 70 MILLIGRAM/SQ. METER DAY 1, 8 ,15
     Route: 042
     Dates: start: 20210618
  2. ZOFRAN [Concomitant]
     Active Substance: ONDANSETRON HYDROCHLORIDE
     Indication: PROPHYLAXIS OF NAUSEA AND VOMITING
     Dosage: 8 MILLIGRAM, AS NECESSARY
     Route: 048
     Dates: start: 20201221
  3. OMEPRAZOLE. [Concomitant]
     Active Substance: OMEPRAZOLE
     Indication: DYSPEPSIA
     Dosage: 20 MILLIGRAM
     Route: 048
     Dates: start: 20201207
  4. ALLERGIA [FEXOFENADINE HYDROCHLORIDE] [Concomitant]
     Indication: SEASONAL ALLERGY
     Dosage: 1 DF,1 IN 1 D
     Route: 048
  5. COMPAZINE [Concomitant]
     Active Substance: PROCHLORPERAZINE MALEATE
     Indication: NAUSEA
     Dosage: 10 MILLIGRAM, AS NECESSARY
     Dates: start: 20201221
  6. DEXAMETHASONE. [Suspect]
     Active Substance: DEXAMETHASONE
     Indication: PLASMA CELL MYELOMA
     Dosage: 40 MILLIGRAM, 1 IN 1 DAY
     Route: 048
     Dates: start: 20201207, end: 20210618
  7. NACL [Concomitant]
     Active Substance: SODIUM CHLORIDE
     Indication: DEHYDRATION
     Dosage: UNK
     Dates: start: 20210622
  8. KYPROLIS [Suspect]
     Active Substance: CARFILZOMIB
     Indication: PLASMA CELL MYELOMA
     Dosage: 40 MILLIGRAM/SQ. METER DAY 1,8,15
     Route: 042
     Dates: start: 20201207
  9. FIORICET [Concomitant]
     Active Substance: ACETAMINOPHEN\BUTALBITAL\CAFFEINE
     Indication: HEADACHE
     Dosage: 60 ?325? 40MG
     Route: 048
     Dates: start: 20191123

REACTIONS (1)
  - Cellulitis staphylococcal [Recovered/Resolved]

NARRATIVE: CASE EVENT DATE: 20210622
